FAERS Safety Report 8788150 (Version 2)
Quarter: 2015Q2

REPORT INFORMATION
  Report Type: Report from Study
  Country: US (occurrence: US)
  Receive Date: 20120914
  Receipt Date: 20150401
  Transmission Date: 20150821
  Serious: Yes (Death)
  Sender: FDA-Public Use
  Company Number: US-ROCHE-1127061

PATIENT
  Age: 58 Year
  Sex: Female

DRUGS (6)
  1. ALIMTA [Concomitant]
     Active Substance: PEMETREXED DISODIUM
     Route: 042
  2. SODIUM CHLORIDE. [Concomitant]
     Active Substance: SODIUM CHLORIDE
     Route: 042
  3. AVASTIN [Suspect]
     Active Substance: BEVACIZUMAB
     Indication: LUNG NEOPLASM MALIGNANT
     Route: 042
     Dates: start: 20090216
  4. DEXAMETHASONE SODIUM PHOSPHATE. [Concomitant]
     Active Substance: DEXAMETHASONE SODIUM PHOSPHATE
     Route: 042
  5. CYANOCOBALAMIN. [Concomitant]
     Active Substance: CYANOCOBALAMIN
     Route: 030
  6. KYTRIL [Concomitant]
     Active Substance: GRANISETRON HYDROCHLORIDE
     Route: 042

REACTIONS (10)
  - Areflexia [Unknown]
  - Nausea [Unknown]
  - Arthralgia [Unknown]
  - Cheilitis [Unknown]
  - Vomiting [Unknown]
  - Mucous membrane disorder [Unknown]
  - Death [Fatal]
  - Decreased appetite [Unknown]
  - Fatigue [Unknown]
  - Contusion [Unknown]

NARRATIVE: CASE EVENT DATE: 20100501
